FAERS Safety Report 9676048 (Version 1)
Quarter: 2013Q4

REPORT INFORMATION
  Report Type: Spontaneous
  Country: US (occurrence: US)
  Receive Date: 20131107
  Receipt Date: 20131107
  Transmission Date: 20140711
  Serious: Yes (Hospitalization, Other)
  Sender: FDA-Public Use
  Company Number: US-BAXTER-2013BAX043030

PATIENT
  Sex: Male

DRUGS (1)
  1. DIANEAL LOW CALCIUM [Suspect]
     Indication: PERITONEAL DIALYSIS
     Route: 033
     Dates: start: 2012, end: 20131031

REACTIONS (4)
  - Coronary artery occlusion [Recovering/Resolving]
  - Fungal oesophagitis [Unknown]
  - Fungal infection [Recovering/Resolving]
  - Device related infection [Recovering/Resolving]
